FAERS Safety Report 6966767-3 (Version None)
Quarter: 2010Q3

REPORT INFORMATION
  Report Type: 
  Country: None (occurrence: None)
  Receive Date: 20100906
  Receipt Date: 20100830
  Transmission Date: 20110219
  Serious: Yes (Other)
  Sender: FDA-Public Use
  Company Number: BE-BRISTOL-MYERS SQUIBB COMPANY-15264567

PATIENT
  Age: 6 Decade
  Sex: Male

DRUGS (1)
  1. ORENCIA [Suspect]
     Dates: start: 20100604

REACTIONS (1)
  - CEREBROVASCULAR ACCIDENT [None]
